FAERS Safety Report 9888163 (Version 1)
Quarter: 2014Q1

REPORT INFORMATION
  Report Type: Spontaneous
  Country: FR (occurrence: FR)
  Receive Date: 20140211
  Receipt Date: 20140211
  Transmission Date: 20141002
  Serious: Yes (Hospitalization, Other)
  Sender: FDA-Public Use
  Company Number: FR-ABBVIE-14P-056-1199909-00

PATIENT
  Age: 54 Year
  Sex: Female

DRUGS (9)
  1. LIPANTHYL [Suspect]
     Indication: HYPERCHOLESTEROLAEMIA
     Dates: start: 2010, end: 20131223
  2. LAMALINE [Suspect]
     Indication: PRODUCT USED FOR UNKNOWN INDICATION
     Dates: end: 20131223
  3. ARAVA [Suspect]
     Indication: ARTHRITIS
     Dates: start: 201212, end: 201312
  4. SALAZOPYRINE [Suspect]
     Indication: PRODUCT USED FOR UNKNOWN INDICATION
     Dates: start: 201303, end: 201312
  5. INEXIUM [Suspect]
     Indication: PRODUCT USED FOR UNKNOWN INDICATION
     Dates: end: 20131223
  6. ATARAX [Concomitant]
     Indication: PRODUCT USED FOR UNKNOWN INDICATION
  7. SEROPLEX [Concomitant]
     Indication: PRODUCT USED FOR UNKNOWN INDICATION
  8. TEMESTA [Concomitant]
     Indication: PRODUCT USED FOR UNKNOWN INDICATION
  9. CORTANCYL [Concomitant]
     Indication: PRODUCT USED FOR UNKNOWN INDICATION

REACTIONS (5)
  - Cholestasis [Recovering/Resolving]
  - Hepatitis [Recovered/Resolved]
  - Hepatocellular injury [Unknown]
  - Hepatic steatosis [Unknown]
  - Hepatic lesion [Unknown]
